FAERS Safety Report 10540593 (Version 3)
Quarter: 2014Q4

REPORT INFORMATION
  Report Type: Spontaneous
  Country: FR (occurrence: None)
  Receive Date: 20141022
  Receipt Date: 20141219
  Transmission Date: 20150529
  Serious: Yes (Hospitalization, Other)
  Sender: FDA-Public Use
  Company Number: AXC-2014-000649

PATIENT
  Age: 78 Year
  Sex: Male

DRUGS (6)
  1. APROVEL (IRBESARTAN) [Concomitant]
  2. TRIMEBUTINE (TRIMEBUTINE) [Concomitant]
  3. NOVONORM (REPAGLINIDE) [Concomitant]
  4. PANTOPRAZOLE (PANTOPRAZOLE) [Concomitant]
     Active Substance: PANTOPRAZOLE SODIUM
  5. METFORMIN [Concomitant]
     Active Substance: METFORMIN HYDROCHLORIDE
  6. PYLERA [Suspect]
     Active Substance: BISMUTH SUBCITRATE POTASSIUM\METRONIDAZOLE\TETRACYCLINE HYDROCHLORIDE
     Indication: HELICOBACTER GASTRITIS
     Route: 048
     Dates: start: 20140809, end: 20140816

REACTIONS (12)
  - Off label use [None]
  - Carotid artery stenosis [None]
  - White matter lesion [None]
  - Cerebellar ataxia [None]
  - Eyelid ptosis [None]
  - Headache [None]
  - Somnolence [None]
  - Cerebellar syndrome [None]
  - Visual acuity reduced transiently [None]
  - Disturbance in attention [None]
  - Cognitive disorder [None]
  - Haemosiderosis [None]

NARRATIVE: CASE EVENT DATE: 20140809
